FAERS Safety Report 4382122-7 (Version None)
Quarter: 2004Q2

REPORT INFORMATION
  Report Type: 
  Country: None (occurrence: None)
  Receive Date: 20040603
  Receipt Date: 20030506
  Transmission Date: 20050107
  Serious: Yes (Other)
  Sender: FDA-Public Use
  Company Number: 200311155US

PATIENT
  Age: 61 Year
  Sex: Male

DRUGS (2)
  1. LOVENOX [Suspect]
     Indication: DEEP VEIN THROMBOSIS
     Dosage: 100 MG BID
  2. LOVENOX [Suspect]
     Indication: PULMONARY EMBOLISM
     Dosage: 100 MG BID

REACTIONS (2)
  - HAEMATOCRIT DECREASED [None]
  - HAEMATOMA [None]
